FAERS Safety Report 19563475 (Version 1)
Quarter: 2021Q3

REPORT INFORMATION
  Report Type: Spontaneous
  Country: ES (occurrence: ES)
  Receive Date: 20210716
  Receipt Date: 20210716
  Transmission Date: 20211014
  Serious: Yes (Life-Threatening, Hospitalization)
  Sender: FDA-Public Use
  Company Number: ES-ASTRAZENECA-2021A618149

PATIENT
  Age: 46 Year
  Sex: Female

DRUGS (3)
  1. LITIO CARBONATO [Interacting]
     Active Substance: LITHIUM CARBONATE
     Indication: SUICIDE ATTEMPT
     Dosage: 7.6G ONCE/SINGLE ADMINISTRATION
     Route: 048
     Dates: start: 20210616, end: 20210616
  2. QUETIAPINA [Suspect]
     Active Substance: QUETIAPINE
     Indication: SUICIDE ATTEMPT
     Dosage: 10.95G ONCE/SINGLE ADMINISTRATION
     Route: 048
     Dates: start: 20210616, end: 20210616
  3. ORFIDAL [Interacting]
     Active Substance: LORAZEPAM
     Indication: SUICIDE ATTEMPT
     Dosage: 50.0MG ONCE/SINGLE ADMINISTRATION
     Route: 048
     Dates: start: 20210616, end: 20210616

REACTIONS (1)
  - Depressed level of consciousness [Recovered/Resolved]

NARRATIVE: CASE EVENT DATE: 20210616
